FAERS Safety Report 8002618-6 (Version None)
Quarter: 2011Q4

REPORT INFORMATION
  Report Type: 
  Country: None (occurrence: None)
  Receive Date: 20111222
  Receipt Date: 20111215
  Transmission Date: 20120403
  Serious: Yes (Hospitalization)
  Sender: FDA-Public Use
  Company Number: FR-GLAXOSMITHKLINE-B0711018A

PATIENT
  Sex: Female

DRUGS (7)
  1. ARIXTRA [Suspect]
     Indication: PRODUCT USED FOR UNKNOWN INDICATION
     Dosage: 2.5MG AT NIGHT
     Route: 058
     Dates: start: 20110202, end: 20110309
  2. NEXIUM [Concomitant]
     Dosage: 40MG AT NIGHT
     Route: 048
  3. ACETAMINOPHEN [Concomitant]
     Dosage: 1G THREE TIMES PER DAY
     Route: 048
  4. ASPIRIN [Concomitant]
     Dosage: 75MG PER DAY
     Route: 048
     Dates: start: 20110204, end: 20110309
  5. ALDALIX [Concomitant]
     Dosage: 1UNIT IN THE MORNING
     Route: 048
  6. POTASSIUM CHLORIDE [Concomitant]
     Dosage: 1UNIT TWICE PER DAY
     Route: 048
  7. ZOLPIDEM [Concomitant]
     Dosage: 10MG AT NIGHT
     Route: 048

REACTIONS (2)
  - TRAUMATIC HAEMATOMA [None]
  - SKIN NECROSIS [None]
